FAERS Safety Report 22603521 (Version 3)
Quarter: 2024Q2

REPORT INFORMATION
  Report Type: Report from Study
  Country: BR (occurrence: BR)
  Receive Date: 20230615
  Receipt Date: 20240619
  Transmission Date: 20240716
  Serious: Yes (Other)
  Sender: FDA-Public Use
  Company Number: BR-CELLTRION INC.-2023BR000324

PATIENT

DRUGS (1)
  1. INFLIXIMAB [Suspect]
     Active Substance: INFLIXIMAB
     Indication: Ankylosing spondylitis
     Dosage: 5 AMPOULES EVERY 8 WEEKS AND HAS BEEN UNDERGOING TREATMENT FOR APPROXIMATELY 4 YEARS
     Route: 042
     Dates: start: 20220908

REACTIONS (5)
  - Ankylosing spondylitis [Unknown]
  - Immunodeficiency [Unknown]
  - Influenza [Unknown]
  - Influenza [Recovered/Resolved]
  - Intentional dose omission [Unknown]

NARRATIVE: CASE EVENT DATE: 20240509
